FAERS Safety Report 8495291-4 (Version None)
Quarter: 2012Q2

REPORT INFORMATION
  Report Type: 
  Country: None (occurrence: None)
  Receive Date: 20120628
  Receipt Date: 20120618
  Transmission Date: 20120825
  Serious: Yes (Hospitalization)
  Sender: FDA-Public Use
  Company Number: DKLU1082218

PATIENT
  Age: 51 Year
  Sex: Female

DRUGS (8)
  1. ZONEGRAN [Concomitant]
  2. TEGRETOL [Concomitant]
  3. LAMICTAL [Concomitant]
  4. LORAZEPAM [Concomitant]
  5. ONFI [Suspect]
     Indication: CONVULSION
     Dosage: SEE IMAGE
     Route: 048
     Dates: start: 20120522
  6. ONFI [Suspect]
     Indication: CONVULSION
     Dosage: SEE IMAGE
     Route: 048
     Dates: start: 20120613
  7. ONFI [Suspect]
     Indication: CONVULSION
     Dosage: SEE IMAGE
     Route: 048
     Dates: start: 20120613
  8. ONFI [Suspect]
     Indication: CONVULSION
     Dosage: SEE IMAGE
     Route: 048
     Dates: start: 20120618

REACTIONS (1)
  - GRAND MAL CONVULSION [None]
